FAERS Safety Report 16224746 (Version 8)
Quarter: 2019Q4

REPORT INFORMATION
  Report Type: Report from Study
  Country: US (occurrence: US)
  Receive Date: 20190422
  Receipt Date: 20191108
  Transmission Date: 20200122
  Serious: Yes (Other)
  Sender: FDA-Public Use
  Company Number: US-ALEXION PHARMACEUTICALS INC.-A201905420

PATIENT
  Sex: Female

DRUGS (1)
  1. STRENSIQ [Suspect]
     Active Substance: ASFOTASE ALFA
     Indication: HYPOPHOSPHATASIA
     Dosage: UNK
     Route: 058

REACTIONS (27)
  - Musculoskeletal pain [Unknown]
  - Peripheral vascular disorder [Unknown]
  - Bone loss [Unknown]
  - Tendon disorder [Unknown]
  - Pericardial effusion [Unknown]
  - Synovial cyst [Unknown]
  - Foot fracture [Not Recovered/Not Resolved]
  - Rib deformity [Unknown]
  - Drug ineffective [Unknown]
  - Injection site pain [Unknown]
  - Injection site haemorrhage [Unknown]
  - Injection site discolouration [Not Recovered/Not Resolved]
  - Back disorder [Unknown]
  - Eczema [Not Recovered/Not Resolved]
  - Impaired healing [Unknown]
  - Injection site reaction [Not Recovered/Not Resolved]
  - Bone density decreased [Unknown]
  - Back pain [Unknown]
  - Fracture [Unknown]
  - Pain in extremity [Unknown]
  - Atrial pressure increased [Unknown]
  - Anxiety [Not Recovered/Not Resolved]
  - Vitreous floaters [Not Recovered/Not Resolved]
  - Ligament sprain [Not Recovered/Not Resolved]
  - Paraesthesia [Unknown]
  - Patellofemoral pain syndrome [Not Recovered/Not Resolved]
  - Condition aggravated [Unknown]

NARRATIVE: CASE EVENT DATE: 2017
